FAERS Safety Report 4773104-1 (Version None)
Quarter: 2005Q3

REPORT INFORMATION
  Report Type: 
  Country: None (occurrence: None)
  Receive Date: 20050916
  Receipt Date: 20050907
  Transmission Date: 20060218
  Serious: Yes (Other)
  Sender: FDA-Public Use
  Company Number: 2005125200

PATIENT
  Sex: Female
  Weight: 58.0604 kg

DRUGS (6)
  1. ZOLOFT [Suspect]
     Indication: DEPRESSION
     Dosage: 50 MG (50 MG, 1 IN 1 D),
  2. ZOLOFT [Suspect]
     Indication: NERVOUSNESS
     Dosage: 50 MG (50 MG, 1 IN 1 D),
  3. OSCAL 500-D (CALCIUM, COLECALCIFEROL) [Concomitant]
  4. FLEXERIL [Concomitant]
  5. LORAZEPAM [Concomitant]
  6. RELAFEN [Concomitant]

REACTIONS (5)
  - ARTHROPATHY [None]
  - CHONDROLYSIS [None]
  - CONDITION AGGRAVATED [None]
  - FIBROMYALGIA [None]
  - OSTEOARTHRITIS [None]
